FAERS Safety Report 8652941 (Version 2)
Quarter: 2013Q2

REPORT INFORMATION
  Report Type: Spontaneous
  Country: FR (occurrence: FR)
  Receive Date: 20120706
  Receipt Date: 20130402
  Transmission Date: 20140414
  Serious: Yes (Death)
  Sender: FDA-Public Use
  Company Number: FR-ACTELION-A-CH2012-67946

PATIENT
  Age: 64 Year
  Sex: Female
  Weight: 44 kg

DRUGS (7)
  1. TRACLEER [Suspect]
     Indication: PULMONARY ARTERIAL HYPERTENSION
     Dosage: 62.5 MG, BID
     Route: 048
     Dates: start: 20120622, end: 20120623
  2. LYRICA [Concomitant]
     Dosage: 100 UNK, UNK
  3. CYMBALTA [Concomitant]
     Dosage: 60 UNK, UNK
  4. KARDEGIC [Concomitant]
     Dosage: 160 UNK, UNK
  5. COLCHICINE [Concomitant]
     Dosage: 1 MG, UNK
  6. PRAXILENE [Concomitant]
     Dosage: 200 UNK, UNK
  7. LASILIX [Concomitant]
     Dosage: 40 MG, UNK

REACTIONS (3)
  - Acute respiratory distress syndrome [Fatal]
  - Pulmonary arterial hypertension [Unknown]
  - Condition aggravated [Unknown]
